FAERS Safety Report 11595910 (Version 2)
Quarter: 2017Q3

REPORT INFORMATION
  Report Type: Spontaneous
  Country: US (occurrence: US)
  Receive Date: 20151006
  Receipt Date: 20170929
  Transmission Date: 20171127
  Serious: Yes (Other)
  Sender: FDA-Public Use
  Company Number: US-SUN PHARMACEUTICAL INDUSTRIES LTD-2015US-104111

PATIENT
  Age: 54 Year
  Sex: Male

DRUGS (15)
  1. PREDNISONE. [Suspect]
     Active Substance: PREDNISONE
     Dosage: 10 MG, 1/WEEK
     Route: 048
  2. DEXAMETHASONE. [Concomitant]
     Active Substance: DEXAMETHASONE
     Indication: PRODUCT USED FOR UNKNOWN INDICATION
     Dosage: UNK
     Route: 031
  3. DUREZOL [Concomitant]
     Active Substance: DIFLUPREDNATE
     Indication: CORNEAL DISORDER
     Dosage: 1 GTT, Q1H
     Route: 047
  4. DUREZOL [Concomitant]
     Active Substance: DIFLUPREDNATE
     Dosage: 1 GTT (DROP), EVERY 2 H TO 4 TIMES A DAY
     Route: 047
  5. PREDNISONE. [Suspect]
     Active Substance: PREDNISONE
     Indication: PRODUCT USED FOR UNKNOWN INDICATION
     Dosage: 60 MG, DAILY
     Route: 048
  6. PREDNISONE. [Suspect]
     Active Substance: PREDNISONE
     Dosage: 20 MG, QOD
     Route: 048
  7. DUREZOL [Concomitant]
     Active Substance: DIFLUPREDNATE
     Dosage: UNK, Q1H
     Route: 047
  8. DUREZOL [Concomitant]
     Active Substance: DIFLUPREDNATE
     Dosage: 1 GTT (DROP), EVERY 2 H
     Route: 047
  9. VIGAMOX [Concomitant]
     Active Substance: MOXIFLOXACIN HYDROCHLORIDE
     Indication: PRODUCT USED FOR UNKNOWN INDICATION
     Dosage: UNK
     Route: 065
  10. ATROPINE. [Concomitant]
     Active Substance: ATROPINE
     Indication: PUPIL DILATION PROCEDURE
     Dosage: UNK UNK, QID
     Route: 061
  11. HEALON [Concomitant]
     Active Substance: HYALURONATE SODIUM
     Indication: EYE DISORDER
     Dosage: UNK
     Route: 065
  12. PREDNISONE. [Suspect]
     Active Substance: PREDNISONE
     Dosage: 60 MG, DAILY
     Route: 048
  13. PHENYLEPHRINE [Concomitant]
     Active Substance: PHENYLEPHRINE\PHENYLEPHRINE HYDROCHLORIDE
     Indication: PRODUCT USED FOR UNKNOWN INDICATION
     Dosage: UNK, QID
     Route: 016
  14. DUREZOL [Concomitant]
     Active Substance: DIFLUPREDNATE
     Dosage: UNK, Q2H
     Route: 047
  15. PREDNISOLONE ACETATE. [Concomitant]
     Active Substance: PREDNISOLONE ACETATE
     Indication: PRODUCT USED FOR UNKNOWN INDICATION
     Dosage: UNK, QID
     Route: 065

REACTIONS (4)
  - Choroidal detachment [Recovered/Resolved]
  - Corneal oedema [Recovered/Resolved]
  - Drug dependence [Unknown]
  - Steroid withdrawal syndrome [Recovered/Resolved]
